FAERS Safety Report 6095681-3 (Version None)
Quarter: 2009Q1

REPORT INFORMATION
  Report Type: 
  Country: None (occurrence: None)
  Receive Date: 20090227
  Receipt Date: 20080521
  Transmission Date: 20090719
  Serious: No
  Sender: FDA-Public Use
  Company Number: A0729045A

PATIENT
  Age: 33 Year
  Sex: Female

DRUGS (6)
  1. LAMICTAL [Suspect]
     Indication: DEPRESSION
     Dosage: 100MG PER DAY
     Route: 048
     Dates: start: 20080418
  2. WELLBUTRIN [Concomitant]
  3. AMBIEN [Concomitant]
  4. MINOCYCLINE [Concomitant]
  5. SYNTHROID [Concomitant]
  6. DAILY VITAMIN [Concomitant]

REACTIONS (1)
  - RASH [None]
